FAERS Safety Report 4553886-4 (Version None)
Quarter: 2005Q1

REPORT INFORMATION
  Report Type: 
  Country: None (occurrence: None)
  Receive Date: 20050113
  Receipt Date: 20050113
  Transmission Date: 20050727
  Serious: No
  Sender: FDA-Public Use
  Company Number: None

PATIENT
  Age: 34 Year
  Sex: Female
  Weight: 54.4316 kg

DRUGS (4)
  1. CELEBREX [Suspect]
     Indication: NECK INJURY
     Dosage: 100 MG QD
  2. FIORICET [Concomitant]
  3. TOPAMAX [Concomitant]
  4. FLEXERIL [Concomitant]

REACTIONS (7)
  - DIARRHOEA [None]
  - DIZZINESS [None]
  - FLUSHING [None]
  - HEART RATE INCREASED [None]
  - NAUSEA [None]
  - PRURITUS [None]
  - URTICARIA [None]
